FAERS Safety Report 17844562 (Version 1)
Quarter: 2020Q2

REPORT INFORMATION
  Report Type: Spontaneous
  Country: US (occurrence: US)
  Receive Date: 20200601
  Receipt Date: 20200601
  Transmission Date: 20200714
  Serious: Yes (Other)
  Sender: FDA-Public Use
  Company Number: US-LEADINGPHARMA-US-2020LEALIT00078

PATIENT
  Age: 61 Year
  Sex: Female

DRUGS (5)
  1. NIRAPARIB [Interacting]
     Active Substance: NIRAPARIB
     Indication: DEPRESSION
     Route: 065
  2. LORAZEPAM TABLETS USP [Suspect]
     Active Substance: LORAZEPAM
     Indication: ANXIETY
     Route: 065
  3. BUSPIRONE [Suspect]
     Active Substance: BUSPIRONE HYDROCHLORIDE
     Indication: MAJOR DEPRESSION
     Route: 065
  4. NIRAPARIB [Interacting]
     Active Substance: NIRAPARIB
     Indication: ANXIETY
  5. ESCITALOPRAM [Suspect]
     Active Substance: ESCITALOPRAM OXALATE
     Indication: MAJOR DEPRESSION
     Route: 065

REACTIONS (1)
  - Drug ineffective [Recovered/Resolved]
